FAERS Safety Report 5513930-4 (Version None)
Quarter: 2007Q4

REPORT INFORMATION
  Report Type: 
  Country: None (occurrence: None)
  Receive Date: 20071113
  Receipt Date: 20071102
  Transmission Date: 20080405
  Serious: Yes (Other)
  Sender: FDA-Public Use
  Company Number: JP-BRISTOL-MYERS SQUIBB COMPANY-13972526

PATIENT
  Age: 48 Year
  Sex: Female

DRUGS (7)
  1. IFOMIDE [Suspect]
     Indication: EXTRANODAL NK/T-CELL LYMPHOMA, NASAL TYPE
     Route: 013
  2. ETOPOSIDE [Suspect]
     Indication: EXTRANODAL NK/T-CELL LYMPHOMA, NASAL TYPE
     Route: 013
  3. CARBOPLATIN [Suspect]
     Indication: EXTRANODAL NK/T-CELL LYMPHOMA, NASAL TYPE
     Route: 013
  4. METHOTREXATE [Suspect]
     Indication: EXTRANODAL NK/T-CELL LYMPHOMA, NASAL TYPE
     Route: 013
  5. PEPLOMYCIN SULFATE [Suspect]
     Indication: EXTRANODAL NK/T-CELL LYMPHOMA, NASAL TYPE
     Route: 013
  6. PREDONINE [Concomitant]
  7. RADIOTHERAPY [Concomitant]
     Dosage: 56 GY=56 DOSAGE FORM

REACTIONS (8)
  - ALANINE AMINOTRANSFERASE INCREASED [None]
  - ASPARTATE AMINOTRANSFERASE INCREASED [None]
  - HAEMOGLOBIN DECREASED [None]
  - NAUSEA [None]
  - OSTEONECROSIS [None]
  - PLATELET COUNT DECREASED [None]
  - STOMATITIS [None]
  - WHITE BLOOD CELL COUNT DECREASED [None]
